FAERS Safety Report 9203516 (Version 2)
Quarter: 2013Q2

REPORT INFORMATION
  Report Type: Spontaneous
  Country: US (occurrence: US)
  Receive Date: 20130402
  Receipt Date: 20130531
  Transmission Date: 20140414
  Serious: No
  Sender: FDA-Public Use
  Company Number: US-PFIZER INC-2013101665

PATIENT
  Age: 53 Year
  Sex: Female
  Weight: 113 kg

DRUGS (1)
  1. LIPITOR [Suspect]
     Indication: BLOOD CHOLESTEROL INCREASED
     Dosage: 40 MG, DAILY
     Dates: start: 20130304

REACTIONS (3)
  - White blood cell count increased [Unknown]
  - Platelet count decreased [Unknown]
  - Haemoglobin decreased [Unknown]
